FAERS Safety Report 18511845 (Version 2)
Quarter: 2021Q2

REPORT INFORMATION
  Report Type: Report from Study
  Country: US (occurrence: US)
  Receive Date: 20201117
  Receipt Date: 20210614
  Transmission Date: 20210717
  Serious: Yes (Other)
  Sender: FDA-Public Use
  Company Number: US-TAKEDA-2020TUS047281

PATIENT
  Sex: Female

DRUGS (1)
  1. CUVITRU [Suspect]
     Active Substance: HUMAN IMMUNOGLOBULIN G
     Indication: PRIMARY IMMUNODEFICIENCY SYNDROME
     Dosage: UNK
     Route: 065

REACTIONS (9)
  - Cognitive disorder [Unknown]
  - Haematochezia [Unknown]
  - Fatigue [Recovering/Resolving]
  - Infusion site swelling [Recovering/Resolving]
  - Fungal infection [Unknown]
  - Repetitive strain injury [Unknown]
  - Infusion site pain [Recovering/Resolving]
  - Polyp [Unknown]
  - Swelling [Unknown]
